FAERS Safety Report 7605254-6 (Version None)
Quarter: 2011Q3

REPORT INFORMATION
  Report Type: 
  Country: None (occurrence: None)
  Receive Date: 20110713
  Receipt Date: 20110707
  Transmission Date: 20111222
  Serious: Yes (Death, Hospitalization, Other)
  Sender: FDA-Public Use
  Company Number: US-ABBOTT-11P-163-0729579-00

PATIENT
  Sex: Female
  Weight: 65.376 kg

DRUGS (1)
  1. HUMIRA [Suspect]
     Indication: CROHN'S DISEASE
     Dates: start: 20110201, end: 20110501

REACTIONS (7)
  - NEPHROTIC SYNDROME [None]
  - TRANSPLANT FAILURE [None]
  - CARDIAC FAILURE [None]
  - ACUTE RESPIRATORY FAILURE [None]
  - METABOLIC ACIDOSIS [None]
  - HYPOCALCAEMIA [None]
  - RENAL FAILURE ACUTE [None]
